FAERS Safety Report 7341491-6 (Version None)
Quarter: 2011Q1

REPORT INFORMATION
  Report Type: 
  Country: None (occurrence: None)
  Receive Date: 20110228
  Receipt Date: 20110217
  Transmission Date: 20110831
  Serious: Yes (Death)
  Sender: FDA-Public Use
  Company Number: AE11-025-4

PATIENT
  Age: 51 Year
  Sex: Female

DRUGS (6)
  1. CYCLOBENZAPRINE [Suspect]
  2. ACETAMINOPHEN/BUTALBITAL/CAFFEINE [Suspect]
  3. OXYCODONE [Suspect]
  4. PROPRANOLOL [Suspect]
  5. TEMAZEPAM [Suspect]
  6. FUROSEMIDE [Suspect]

REACTIONS (1)
  - SUICIDAL IDEATION [None]
